FAERS Safety Report 10698178 (Version 1)
Quarter: 2014Q3

REPORT INFORMATION
  Report Type: Spontaneous
  Country: US (occurrence: US)
  Receive Date: 20140911
  Receipt Date: 20140911
  Transmission Date: 20150326
  Serious: Yes (Hospitalization, Disabling, Other)
  Sender: FDA-Public Use
  Company Number: US-APOTEX-2014AP004625

PATIENT

DRUGS (1)
  1. PAXIL [Suspect]
     Active Substance: PAROXETINE HYDROCHLORIDE
     Indication: CHEST PAIN
     Dosage: UNK UNK, QD
     Route: 065
     Dates: start: 2012

REACTIONS (24)
  - Thinking abnormal [Unknown]
  - Nerve injury [Not Recovered/Not Resolved]
  - Mental disorder [Unknown]
  - Disability [Unknown]
  - Abnormal behaviour [Unknown]
  - General physical health deterioration [Unknown]
  - Psychiatric symptom [Not Recovered/Not Resolved]
  - Social problem [Unknown]
  - Fatigue [Unknown]
  - Scar [Not Recovered/Not Resolved]
  - Feeling abnormal [Unknown]
  - Suicide attempt [Recovered/Resolved]
  - Dizziness [Unknown]
  - Depression [Unknown]
  - Cardiac disorder [Not Recovered/Not Resolved]
  - Physical disability [Not Recovered/Not Resolved]
  - Panic attack [Unknown]
  - Insomnia [Unknown]
  - Mental status changes [Unknown]
  - Loss of employment [Unknown]
  - Dyskinesia [Unknown]
  - Laceration [Unknown]
  - Family stress [Unknown]
  - Haemorrhage [Unknown]
